FAERS Safety Report 14044424 (Version 5)
Quarter: 2018Q2

REPORT INFORMATION
  Report Type: Spontaneous
  Country: BE (occurrence: BE)
  Receive Date: 20171004
  Receipt Date: 20180427
  Transmission Date: 20180711
  Serious: Yes (Hospitalization, Other)
  Sender: FDA-Public Use
  Company Number: BE-PFIZER INC-2017422642

PATIENT
  Age: 63 Year
  Sex: Female
  Weight: 63 kg

DRUGS (12)
  1. XALKORI [Suspect]
     Active Substance: CRIZOTINIB
     Dosage: 250 MG, 2X/DAY
  2. KEYTRUDA [Suspect]
     Active Substance: PEMBROLIZUMAB
     Indication: IMMUNE SYSTEM DISORDER
     Dosage: UNK
     Dates: start: 20170609, end: 20170818
  3. BELSAR /01635402/ [Concomitant]
     Dosage: 20/12.5, 1
  4. XALKORI [Suspect]
     Active Substance: CRIZOTINIB
     Dosage: 100 MG, UNK
  5. XALKORI [Suspect]
     Active Substance: CRIZOTINIB
     Indication: LUNG ADENOCARCINOMA
     Dosage: 250 MG, 2X/DAY
     Dates: start: 20170906, end: 20170918
  6. MEDROL [Suspect]
     Active Substance: METHYLPREDNISOLONE
     Dosage: 8 MG, UNK
     Route: 048
  7. MEDROL [Suspect]
     Active Substance: METHYLPREDNISOLONE
     Dosage: UNK
  8. MONTELUKAST [Concomitant]
     Active Substance: MONTELUKAST SODIUM
     Dosage: 10 UNK, 1X
     Route: 048
  9. XALKORI [Suspect]
     Active Substance: CRIZOTINIB
     Dosage: 200 MG, UNK
  10. VENTOLIN [Concomitant]
     Active Substance: ALBUTEROL SULFATE
     Dosage: UNK
  11. SERETIDE [Concomitant]
     Active Substance: FLUTICASONE PROPIONATE\SALMETEROL XINAFOATE
     Dosage: 50/500, 2X
  12. SEDACID /00661201/ [Concomitant]
     Active Substance: OMEPRAZOLE
     Dosage: 10, 1

REACTIONS (9)
  - Gastritis [Unknown]
  - Eosinophil count increased [Unknown]
  - Arthralgia [Unknown]
  - Angioedema [Recovered/Resolved]
  - Liver function test abnormal [Unknown]
  - Urticaria [Recovered/Resolved]
  - Renal failure [Unknown]
  - Joint effusion [Unknown]
  - Serum sickness [Unknown]

NARRATIVE: CASE EVENT DATE: 20170918
